FAERS Safety Report 24974289 (Version 1)
Quarter: 2025Q1

REPORT INFORMATION
  Report Type: Spontaneous
  Country: US (occurrence: US)
  Receive Date: 20250217
  Receipt Date: 20250217
  Transmission Date: 20250408
  Serious: Yes (Hospitalization, Other)
  Sender: APOTEX
  Company Number: US-APOTEX-2025AP002168

PATIENT
  Sex: Female

DRUGS (3)
  1. SOTALOL [Suspect]
     Active Substance: SOTALOL
     Indication: Atrial fibrillation
     Route: 065
  2. SOTALOL [Suspect]
     Active Substance: SOTALOL
     Route: 065
  3. WARFARIN [Concomitant]
     Active Substance: WARFARIN
     Indication: Atrial fibrillation
     Route: 065

REACTIONS (4)
  - Accidental exposure to product [Unknown]
  - Toxicity to various agents [Unknown]
  - Renal failure [Recovered/Resolved]
  - Hypotension [Recovered/Resolved]
